FAERS Safety Report 18202993 (Version 1)
Quarter: 2020Q3

REPORT INFORMATION
  Report Type: Spontaneous
  Country: US (occurrence: US)
  Receive Date: 20200827
  Receipt Date: 20200827
  Transmission Date: 20201103
  Serious: Yes (Life-Threatening, Other)
  Sender: FDA-Public Use
  Company Number: NVSC2020US235213

PATIENT
  Age: 60 Year
  Sex: Female

DRUGS (2)
  1. VALSARTAN. [Suspect]
     Active Substance: VALSARTAN
     Indication: PRODUCT USED FOR UNKNOWN INDICATION
     Dosage: UNK
     Route: 065
  2. LENVATINIB [Suspect]
     Active Substance: LENVATINIB
     Indication: SALIVARY GLAND CANCER
     Dosage: 20 MG, QD
     Route: 048
     Dates: start: 20200728

REACTIONS (4)
  - Loss of consciousness [Unknown]
  - Oropharyngeal pain [Unknown]
  - Back pain [Unknown]
  - Mouth swelling [Unknown]
